FAERS Safety Report 8728355 (Version 4)
Quarter: 2013Q1

REPORT INFORMATION
  Report Type: Spontaneous
  Country: US (occurrence: None)
  Receive Date: 20120731
  Receipt Date: 20130305
  Transmission Date: 20140127
  Serious: Yes (Other)
  Sender: FDA-Public Use
  Company Number: JPI-P-022965

PATIENT
  Age: 77 Year
  Sex: Male
  Weight: 83.92 kg

DRUGS (3)
  1. XYREM [Suspect]
     Indication: NARCOLEPSY
     Route: 048
     Dates: start: 20090119, end: 20090319
  2. METHYLPHENIDATE [Concomitant]
  3. PREDNISONE [Concomitant]

REACTIONS (5)
  - Thrombosis [None]
  - Asthenia [None]
  - Dyspnoea [None]
  - Autoimmune haemolytic anaemia [None]
  - Pneumonia [None]
